FAERS Safety Report 21516243 (Version 1)
Quarter: 2022Q4

REPORT INFORMATION
  Report Type: Report from Study
  Country: US (occurrence: US)
  Receive Date: 20221027
  Receipt Date: 20221027
  Transmission Date: 20230113
  Serious: Yes (Hospitalization)
  Sender: FDA-Public Use
  Company Number: US-PFIZER INC-202200722484

PATIENT
  Age: 21 Year
  Sex: Male
  Weight: 48.2 kg

DRUGS (15)
  1. VINCRISTINE SULFATE [Suspect]
     Active Substance: VINCRISTINE SULFATE
     Indication: Acute lymphocytic leukaemia
     Dosage: 2 MG AS DIRECTED
     Route: 042
     Dates: start: 20210716
  2. DOXORUBICIN HYDROCHLORIDE [Suspect]
     Active Substance: DOXORUBICIN HYDROCHLORIDE
     Indication: Acute lymphocytic leukaemia
     Dosage: 38 MG AS DIRECTED
     Route: 042
     Dates: start: 20211119
  3. METHOTREXATE SODIUM [Suspect]
     Active Substance: METHOTREXATE SODIUM
     Indication: Acute lymphocytic leukaemia
     Dosage: 15 MG AS DIRECTED
     Route: 037
     Dates: start: 20210702
  4. CYTARABINE [Suspect]
     Active Substance: CYTARABINE
     Indication: Acute lymphocytic leukaemia
     Dosage: 115 MG AS DIRECTED
     Route: 058
     Dates: start: 20210702
  5. METHOTREXATE SODIUM [Suspect]
     Active Substance: METHOTREXATE SODIUM
     Indication: Acute lymphocytic leukaemia
     Dosage: 7500 MG ON DAYS 1, 15, 29, 43 OF INTERIM MAINTENANCE 1
     Route: 042
     Dates: start: 20210910, end: 20211029
  6. METHOTREXATE SODIUM [Suspect]
     Active Substance: METHOTREXATE SODIUM
     Dosage: 145 MG, DAYS 1, 11, 21, 31 AND 41 OF INTERIM MAINTENANCE 2
     Route: 042
     Dates: start: 20220120
  7. PREDNISONE [Suspect]
     Active Substance: PREDNISONE
     Indication: Acute lymphocytic leukaemia
     Dosage: TABLET, 30 MG, BID DAYS 1-5
     Route: 048
     Dates: start: 20220325
  8. RUXOLITINIB [Suspect]
     Active Substance: RUXOLITINIB
     Indication: Acute lymphocytic leukaemia
     Dosage: TABLET, 75 MG, BID DAYS 1-14
     Route: 048
     Dates: start: 20210702
  9. MERCAPTOPURINE [Suspect]
     Active Substance: MERCAPTOPURINE
     Indication: Acute lymphocytic leukaemia
     Dosage: TABLET, 775 MILLIGRAM/WEEK, QD
     Route: 048
     Dates: start: 20210702
  10. METHOTREXATE SODIUM [Suspect]
     Active Substance: METHOTREXATE SODIUM
     Indication: Acute lymphocytic leukaemia
     Dosage: TABLET, 30 MG, ONCE WEEKLY
     Route: 048
     Dates: start: 20220325
  11. THIOGUANINE [Suspect]
     Active Substance: THIOGUANINE
     Indication: Acute lymphocytic leukaemia
     Dosage: TABLET, 640 MG/WEEK WHEN ON DAYS 29-42 OF DELAYED INTENSIFICATION
     Route: 048
     Dates: start: 20211223
  12. DEXAMETHASONE [Suspect]
     Active Substance: DEXAMETHASONE
     Indication: Acute lymphocytic leukaemia
     Dosage: TABLET, 8 MG BID AS DIRECTED DAYS 1-7 AND 15-21 OF DELAYED INTENSIFICATION
     Route: 048
     Dates: start: 20211119
  13. PEGASPARGASE [Suspect]
     Active Substance: PEGASPARGASE
     Indication: Acute lymphocytic leukaemia
     Dosage: 3625 IU WHEN INDICATED
     Route: 042
     Dates: start: 20210716
  14. LEUCOVORIN [Suspect]
     Active Substance: LEUCOVORIN
     Indication: Acute lymphocytic leukaemia
     Dosage: TABLET, 23 MG, AS NEEDED
     Route: 042
     Dates: start: 20210912
  15. CYCLOPHOSPHAMIDE [Suspect]
     Active Substance: CYCLOPHOSPHAMIDE
     Indication: Acute lymphocytic leukaemia
     Dosage: 1530 MG, WHEN INDICATED
     Route: 042
     Dates: start: 20210702

REACTIONS (1)
  - Osteonecrosis [Recovered/Resolved]

NARRATIVE: CASE EVENT DATE: 20220506
